FAERS Safety Report 19482042 (Version 1)
Quarter: 2021Q3

REPORT INFORMATION
  Report Type: Spontaneous
  Country: FR (occurrence: FR)
  Receive Date: 20210701
  Receipt Date: 20210701
  Transmission Date: 20211014
  Serious: Yes (Hospitalization)
  Sender: FDA-Public Use
  Company Number: FR-SUN PHARMACEUTICAL INDUSTRIES LTD-2021RR-302748

PATIENT
  Age: 56 Year
  Sex: Female
  Weight: 79 kg

DRUGS (4)
  1. TRAMADOL. [Suspect]
     Active Substance: TRAMADOL
     Indication: PRODUCT USED FOR UNKNOWN INDICATION
     Dosage: 1 DOSAGE FORM, IN TOTAL
     Route: 065
     Dates: start: 20210521, end: 20210521
  2. COMPLEMENT ALIMENTAIRE [Concomitant]
     Active Substance: DIETARY SUPPLEMENT
     Indication: PRODUCT USED FOR UNKNOWN INDICATION
     Dosage: UNK
     Route: 048
  3. COMIRNATY [Suspect]
     Active Substance: TOZINAMERAN
     Indication: COVID-19 IMMUNISATION
     Dosage: 1 DOSAGE FORM, IN TOTAL
     Route: 030
     Dates: start: 20210507, end: 20210507
  4. KARDEGIC [Concomitant]
     Active Substance: ASPIRIN DL-LYSINE
     Indication: PRODUCT USED FOR UNKNOWN INDICATION
     Dosage: UNK
     Route: 048

REACTIONS (1)
  - Pancreatitis acute [Recovered/Resolved]

NARRATIVE: CASE EVENT DATE: 20210522
